FAERS Safety Report 11789459 (Version 1)
Quarter: 2015Q4

REPORT INFORMATION
  Report Type: Spontaneous
  Country: US (occurrence: US)
  Receive Date: 20151201
  Receipt Date: 20151201
  Transmission Date: 20160305
  Serious: No
  Sender: FDA-Public Use
  Company Number: US-CAREFUSION 213 LLC-1044832

PATIENT
  Age: 40 Year
  Sex: Female

DRUGS (1)
  1. SCRUB CARE (CHLORHEXIDINE GLUCONATE) [Suspect]
     Active Substance: CHLORHEXIDINE GLUCONATE
     Indication: PREOPERATIVE CARE
     Route: 061
     Dates: start: 20150101, end: 20150101

REACTIONS (2)
  - Accidental exposure to product [None]
  - Application site pain [Recovered/Resolved]

NARRATIVE: CASE EVENT DATE: 20150101
